FAERS Safety Report 8436604-9 (Version None)
Quarter: 2012Q2

REPORT INFORMATION
  Report Type: 
  Country: None (occurrence: None)
  Receive Date: 20120614
  Receipt Date: 20120607
  Transmission Date: 20120825
  Serious: Yes (Hospitalization)
  Sender: FDA-Public Use
  Company Number: CZ-EISAI INC-E7389-02414-CLI-CZ

PATIENT
  Sex: Female
  Weight: 60 kg

DRUGS (9)
  1. EPIRUBICIN HYDROCHLORIDE [Suspect]
     Indication: SARCOMA
     Route: 041
     Dates: start: 20120322
  2. STILNOX [Concomitant]
     Dates: start: 20070101
  3. REMERON [Concomitant]
     Dates: start: 20070101
  4. FILGRASTIM [Concomitant]
     Indication: PROPHYLAXIS
     Dates: start: 20120329
  5. IBALGIN [Concomitant]
     Dates: start: 20120330, end: 20120416
  6. CIPROFLOXACIN [Concomitant]
     Dates: start: 20120413, end: 20120419
  7. ONDANSETRON [Concomitant]
     Indication: PREMEDICATION
     Dates: start: 20120322
  8. ACETAMINOPHEN [Concomitant]
     Dates: start: 20120419, end: 20120504
  9. CODEINE SUL TAB [Concomitant]
     Dates: start: 20120426, end: 20120504

REACTIONS (1)
  - BRONCHOPNEUMONIA [None]
